FAERS Safety Report 4311181-2 (Version None)
Quarter: 2004Q1

REPORT INFORMATION
  Report Type: 
  Country: None (occurrence: None)
  Receive Date: 20040301
  Receipt Date: 20040120
  Transmission Date: 20041129
  Serious: No
  Sender: FDA-Public Use
  Company Number: WAES 0401USA01444

PATIENT
  Age: 60 Year
  Sex: Male

DRUGS (2)
  1. ZETIA [Suspect]
     Indication: HYPERCHOLESTEROLAEMIA
     Dosage: 10 MG/ DAILY/ PO
     Route: 048
     Dates: start: 20031101
  2. ZOCOR [Concomitant]

REACTIONS (2)
  - BLOOD CHOLESTEROL DECREASED [None]
  - LOW DENSITY LIPOPROTEIN DECREASED [None]
